APPROVED DRUG PRODUCT: NEXCEDE
Active Ingredient: KETOPROFEN
Strength: 12.5MG
Dosage Form/Route: FILM;ORAL
Application: N022470 | Product #001
Applicant: NOVARTIS CONSUMER HEALTH INC
Approved: Nov 25, 2009 | RLD: No | RS: No | Type: DISCN